FAERS Safety Report 17286288 (Version 1)
Quarter: 2020Q1

REPORT INFORMATION
  Report Type: Spontaneous
  Country: US (occurrence: US)
  Receive Date: 20200118
  Receipt Date: 20200118
  Transmission Date: 20200409
  Serious: Yes (Other)
  Sender: FDA-Public Use
  Company Number: US-AMGEN-USASP2020004283

PATIENT
  Age: 70 Year
  Sex: Female

DRUGS (1)
  1. PROLIA [Suspect]
     Active Substance: DENOSUMAB
     Indication: OSTEOPOROSIS POSTMENOPAUSAL
     Dosage: UNK
     Route: 065

REACTIONS (8)
  - Eye disorder [Unknown]
  - Back pain [Unknown]
  - Jaw disorder [Not Recovered/Not Resolved]
  - Tooth extraction [Unknown]
  - Myalgia [Unknown]
  - Pain in extremity [Unknown]
  - Headache [Unknown]
  - Arthralgia [Unknown]
